FAERS Safety Report 25564676 (Version 1)
Quarter: 2025Q3

REPORT INFORMATION
  Report Type: Spontaneous
  Country: US (occurrence: None)
  Receive Date: 20250714
  Receipt Date: 20250714
  Transmission Date: 20251021
  Serious: Yes (Hospitalization)
  Sender: FDA-CTU
  Company Number: None

PATIENT
  Sex: Female

DRUGS (6)
  1. REMICADE [Suspect]
     Active Substance: INFLIXIMAB
     Indication: Crohn^s disease
     Route: 042
     Dates: start: 20230328
  2. NORMAL SALINE FLUSH (5ML) [Concomitant]
  3. STERILE WATER INJ (10ML/VL) [Concomitant]
  4. SODIUM CHLOR (250ML/BAG) [Concomitant]
  5. DIPHENHYDRAMINE SDV (1ML/VL) [Concomitant]
  6. NORMAL SALINE FLUSH (10ML) [Concomitant]

REACTIONS (4)
  - Incorrect dose administered [None]
  - Drug ineffective [None]
  - Vomiting [None]
  - Abdominal discomfort [None]
